FAERS Safety Report 24220945 (Version 1)
Quarter: 2024Q3

REPORT INFORMATION
  Report Type: Spontaneous
  Country: EG (occurrence: EG)
  Receive Date: 20240819
  Receipt Date: 20240819
  Transmission Date: 20241016
  Serious: Yes (Other)
  Sender: JOHNSON AND JOHNSON
  Company Number: EG-JNJFOC-20240828479

PATIENT
  Age: 44 Year
  Sex: Male

DRUGS (4)
  1. REMICADE [Suspect]
     Active Substance: INFLIXIMAB
     Indication: Product used for unknown indication
     Dosage: HE TOOK LOADING DOSE THEN 2 WEEKS LATER HE TOOK MAINTENANCE DOSE THEN EVERY MONTH THEN UPGRADED TO E
     Route: 041
     Dates: start: 201902, end: 202009
  2. PENTASA [Concomitant]
     Active Substance: MESALAMINE
  3. IMURAN [Concomitant]
     Active Substance: AZATHIOPRINE
  4. PREDNISOLONE [Concomitant]
     Active Substance: PREDNISOLONE

REACTIONS (6)
  - Haematochezia [Unknown]
  - Asthenia [Unknown]
  - Weight decreased [Unknown]
  - Herpes zoster [Unknown]
  - Diarrhoea [Unknown]
  - Drug ineffective [Unknown]
